FAERS Safety Report 20194255 (Version 1)
Quarter: 2021Q4

REPORT INFORMATION
  Report Type: Report from Study
  Country: CA (occurrence: None)
  Receive Date: 20211216
  Receipt Date: 20211216
  Transmission Date: 20220303
  Serious: Yes (Other)
  Sender: FDA-Public Use
  Company Number: 2020SF22616

PATIENT
  Age: 52 Year
  Sex: Female
  Weight: 80 kg

DRUGS (9)
  1. PULMICORT TURBUHALER [Suspect]
     Active Substance: BUDESONIDE
     Indication: Product used for unknown indication
     Dosage: UNKNOWN DOSE
     Route: 055
  2. DEXAMETHASONE [Suspect]
     Active Substance: DEXAMETHASONE
     Indication: Product used for unknown indication
     Route: 065
  3. ADVAIR HFA [Suspect]
     Active Substance: FLUTICASONE PROPIONATE\SALMETEROL XINAFOATE
     Indication: Asthma
     Route: 065
  4. FLOVENT DISKUS [Suspect]
     Active Substance: FLUTICASONE PROPIONATE
     Indication: Asthma
     Route: 065
  5. LORATADINE [Suspect]
     Active Substance: LORATADINE
     Indication: Product used for unknown indication
     Route: 065
  6. MEPOLIZUMAB [Suspect]
     Active Substance: MEPOLIZUMAB
     Indication: Asthma
     Dosage: 100 MG, Z100.0MG UNKNOWN
     Route: 042
  7. SINGULAIR [Suspect]
     Active Substance: MONTELUKAST SODIUM
     Indication: Product used for unknown indication
     Route: 065
  8. SPIRIVA [Suspect]
     Active Substance: TIOTROPIUM BROMIDE MONOHYDRATE
     Indication: Product used for unknown indication
     Route: 065
  9. VENTOLIN [Suspect]
     Active Substance: ALBUTEROL SULFATE
     Indication: Asthma
     Route: 065

REACTIONS (14)
  - Aspergillus infection [Unknown]
  - Asthma [Unknown]
  - Wheezing [Unknown]
  - Chest discomfort [Unknown]
  - Chronic sinusitis [Unknown]
  - Fungal skin infection [Unknown]
  - Nasal discharge discolouration [Unknown]
  - Nasal polyps [Unknown]
  - Upper-airway cough syndrome [Unknown]
  - Dyspnoea exertional [Unknown]
  - Emotional distress [Unknown]
  - Rash [Unknown]
  - Cough [Unknown]
  - Drug ineffective [Unknown]
